FAERS Safety Report 8190544-1 (Version None)
Quarter: 2012Q1

REPORT INFORMATION
  Report Type: 
  Country: None (occurrence: None)
  Receive Date: 20120307
  Receipt Date: 20120228
  Transmission Date: 20120608
  Serious: Yes (Other)
  Sender: FDA-Public Use
  Company Number: JP-B.I. PHARMACEUTICALS,INC./RIDGEFIELD-2012-BP-02730YA

PATIENT
  Age: 88 Year
  Sex: Male

DRUGS (9)
  1. LASIX [Concomitant]
     Route: 065
  2. TAMSULOSIN HCL [Suspect]
     Indication: BENIGN PROSTATIC HYPERPLASIA
     Dosage: 0.2 MG
     Route: 048
  3. DIGOXIN [Concomitant]
     Route: 048
  4. SENNOSIDE (SENNOSIDE A+B) [Concomitant]
     Route: 065
  5. ALEVIATIN (PHENYTOIN) [Concomitant]
     Route: 048
  6. BUFFERIN [Concomitant]
     Route: 065
  7. ALDACTONE [Concomitant]
     Route: 065
  8. LAC B (LACTOBACILLUS BIFIDUS, LYOPHILIZED) [Concomitant]
     Route: 048
  9. DEPAKENE [Concomitant]
     Route: 048

REACTIONS (2)
  - URINARY RETENTION [None]
  - BENIGN PROSTATIC HYPERPLASIA [None]
